FAERS Safety Report 16363768 (Version 9)
Quarter: 2019Q4

REPORT INFORMATION
  Report Type: Spontaneous
  Country: US (occurrence: US)
  Receive Date: 20190528
  Receipt Date: 20191227
  Transmission Date: 20200122
  Serious: Yes (Death, Hospitalization, Congenital Anomaly, Other)
  Sender: FDA-Public Use
  Company Number: PHEH2019US022716

PATIENT
  Sex: Female

DRUGS (5)
  1. ZOFRAN [Suspect]
     Active Substance: ONDANSETRON HYDROCHLORIDE
     Indication: FOETAL EXPOSURE DURING PREGNANCY
     Dosage: MOTHER DOSE: 08 MG, Q8H
     Route: 064
  2. ONDANSETRON DR REDDY [Suspect]
     Active Substance: ONDANSETRON
     Indication: FOETAL EXPOSURE DURING PREGNANCY
     Dosage: MOTHER DOSE: 08 MG, PRN
     Route: 064
  3. ONDANSETRON TEVA [Suspect]
     Active Substance: ONDANSETRON
     Indication: FOETAL EXPOSURE DURING PREGNANCY
     Dosage: MOTHER DOSE: 04 MG, PRN
     Route: 064
  4. ZOFRAN [Suspect]
     Active Substance: ONDANSETRON HYDROCHLORIDE
     Indication: FOETAL EXPOSURE DURING PREGNANCY
     Dosage: MOTHER DOSE 08 MG, BID
     Route: 064
  5. ONDANSETRON TEVA [Suspect]
     Active Substance: ONDANSETRON
     Indication: FOETAL EXPOSURE DURING PREGNANCY
     Dosage: MOTHER DOSE: 04 MG. QD
     Route: 064

REACTIONS (72)
  - Ventricular septal defect [Unknown]
  - Trisomy 18 [Unknown]
  - Bicuspid aortic valve [Unknown]
  - Trisomy 21 [Unknown]
  - Pulmonary oedema [Unknown]
  - Right ventricular hypertrophy [Unknown]
  - Constipation [Unknown]
  - Foetal growth restriction [Unknown]
  - Atelectasis neonatal [Unknown]
  - Cholestasis [Unknown]
  - Gross motor delay [Unknown]
  - Metabolic acidosis [Unknown]
  - Epistaxis [Unknown]
  - Upper respiratory tract infection [Unknown]
  - Cardiac murmur [Unknown]
  - Congenital diaphragmatic hernia [Unknown]
  - Heart disease congenital [Unknown]
  - Right-to-left cardiac shunt [Unknown]
  - Neonatal hepatomegaly [Unknown]
  - Apnoea [Unknown]
  - Failure to thrive [Unknown]
  - Pleural effusion [Unknown]
  - Right ventricular dilatation [Unknown]
  - Deformity [Unknown]
  - Hyperbilirubinaemia neonatal [Unknown]
  - Anaemia [Unknown]
  - Cardiomegaly [Unknown]
  - Hyperhidrosis [Unknown]
  - Hypotonia [Unknown]
  - Left-to-right cardiac shunt [Unknown]
  - Acute respiratory failure [Unknown]
  - Azotaemia [Unknown]
  - Developmental delay [Unknown]
  - Foetal exposure during pregnancy [Unknown]
  - Anhedonia [Unknown]
  - Selective eating disorder [Unknown]
  - Pulmonary hypertension [Unknown]
  - Poor feeding infant [Unknown]
  - Asthma [Unknown]
  - Speech disorder [Unknown]
  - Dysphagia [Unknown]
  - Choanal atresia [Unknown]
  - Chronic respiratory failure [Unknown]
  - Neonatal hypoxia [Unknown]
  - Hypokalaemia [Unknown]
  - Neonatal hyponatraemia [Unknown]
  - Pulmonary congestion [Unknown]
  - Bronchiectasis [Unknown]
  - Epilepsy [Unknown]
  - Bronchiolitis [Unknown]
  - Bundle branch block right [Unknown]
  - Pain [Unknown]
  - Injury [Not Recovered/Not Resolved]
  - Atrial septal defect [Unknown]
  - Ankyloglossia congenital [Unknown]
  - Seizure [Unknown]
  - Pyelocaliectasis [Unknown]
  - Pneumonia [Unknown]
  - Tricuspid valve incompetence [Unknown]
  - Discordant twin [Unknown]
  - Hyperchloraemia [Unknown]
  - Thrombocytosis [Unknown]
  - Death [Fatal]
  - Patent ductus arteriosus [Unknown]
  - Sepsis [Unknown]
  - Right atrial enlargement [Unknown]
  - Right ventricular enlargement [Unknown]
  - Emotional distress [Unknown]
  - Gastrooesophageal reflux disease [Unknown]
  - Sinus bradycardia [Unknown]
  - Lung disorder [Unknown]
  - Malnutrition [Unknown]
